FAERS Safety Report 5457010-5 (Version None)
Quarter: 2007Q3

REPORT INFORMATION
  Report Type: 
  Country: None (occurrence: None)
  Receive Date: 20070918
  Receipt Date: 20070910
  Transmission Date: 20080115
  Serious: Yes (Other)
  Sender: FDA-Public Use
  Company Number: ES-PFIZER INC-2007029315

PATIENT
  Sex: Female
  Weight: 92.5 kg

DRUGS (4)
  1. ZARATOR [Suspect]
     Indication: HYPERCHOLESTEROLAEMIA
     Route: 048
     Dates: start: 20020614, end: 20070101
  2. EUTIROX [Concomitant]
     Indication: HYPOTHYROIDISM
     Route: 048
  3. TELFAST [Concomitant]
     Indication: URTICARIA
     Route: 048
     Dates: start: 20000101, end: 20070101
  4. RUPATADINE [Concomitant]
     Indication: URTICARIA
     Dates: start: 20051201

REACTIONS (2)
  - HYPOTHYROIDISM [None]
  - URTICARIA [None]
